FAERS Safety Report 4645956-7 (Version None)
Quarter: 2005Q2

REPORT INFORMATION
  Report Type: 
  Country: None (occurrence: None)
  Receive Date: 20050425
  Receipt Date: 20050411
  Transmission Date: 20051028
  Serious: Yes (Other)
  Sender: FDA-Public Use
  Company Number: DE-2005-002316

PATIENT
  Sex: Female

DRUGS (1)
  1. MIRENA [Suspect]
     Dosage: 20 UG/DAY, CONT, ITNRA-UTERINE
     Route: 015
     Dates: start: 20040601

REACTIONS (2)
  - HYPERBILIRUBINAEMIA [None]
  - OCULAR ICTERUS [None]
